FAERS Safety Report 4540454-3 (Version None)
Quarter: 2004Q4

REPORT INFORMATION
  Report Type: 
  Country: None (occurrence: None)
  Receive Date: 20041229
  Receipt Date: 20041217
  Transmission Date: 20050328
  Serious: Yes (Hospitalization)
  Sender: FDA-Public Use
  Company Number: JP-JNJFOC-20041001529

PATIENT
  Sex: Female
  Weight: 56.4 kg

DRUGS (20)
  1. REMICADE [Suspect]
     Route: 042
  2. REMICADE [Suspect]
     Route: 042
  3. REMICADE [Suspect]
     Route: 042
  4. REMICADE [Suspect]
     Indication: RHEUMATOID ARTHRITIS
     Route: 042
  5. RHEUMATREX [Suspect]
     Route: 049
  6. RHEUMATREX [Suspect]
     Indication: RHEUMATOID ARTHRITIS
     Route: 049
  7. ADRENOCORTICAL HORMONE [Concomitant]
  8. PREDONINE [Concomitant]
     Route: 049
  9. PREDONINE [Concomitant]
     Route: 049
  10. PREDONINE [Concomitant]
     Route: 049
  11. PREDONINE [Concomitant]
     Route: 049
  12. PREDONINE [Concomitant]
     Indication: RHEUMATOID ARTHRITIS
     Route: 049
  13. HYPEN [Concomitant]
     Route: 049
  14. HYPEN [Concomitant]
     Indication: RHEUMATOID ARTHRITIS
     Route: 049
  15. NEUROTROPIN [Concomitant]
     Indication: RHEUMATOID ARTHRITIS
     Dosage: 24 UNITS
     Route: 049
  16. LOXONIN [Concomitant]
     Indication: RHEUMATOID ARTHRITIS
     Route: 049
  17. MYSLEE [Concomitant]
     Indication: INSOMNIA
  18. MEILAX [Concomitant]
     Indication: DEPRESSION
  19. BUP-4 [Concomitant]
  20. ABILIT [Concomitant]
     Indication: DEPRESSION

REACTIONS (5)
  - DRUG INTERACTION [None]
  - FATIGUE [None]
  - LUNG DISORDER [None]
  - NAUSEA [None]
  - PULMONARY HAEMORRHAGE [None]
